FAERS Safety Report 9167684 (Version 1)
Quarter: 2013Q1

REPORT INFORMATION
  Report Type: Spontaneous
  Country: NO (occurrence: None)
  Receive Date: 20130314
  Receipt Date: 20130314
  Transmission Date: 20140127
  Serious: Yes (Death)
  Sender: FDA-Public Use
  Company Number: ABR_00865_2013

PATIENT
  Age: 4 Month
  Sex: Female

DRUGS (1)
  1. ERYTHROMYCIN [Suspect]
     Indication: PRODUCT USED FOR UNKNOWN INDICATION
     Dosage: 220 MG BID, 500-100 MG DAILY (250 MG, 2 IN 1 D) TRANSMAMMARY)
     Dates: start: 20111214

REACTIONS (2)
  - Sudden infant death syndrome [None]
  - Exposure during breast feeding [None]
